FAERS Safety Report 12613589 (Version 1)
Quarter: 2016Q3

REPORT INFORMATION
  Report Type: Spontaneous
  Country: CZ (occurrence: CZ)
  Receive Date: 20160802
  Receipt Date: 20160802
  Transmission Date: 20161109
  Serious: Yes (Other)
  Sender: FDA-Public Use
  Company Number: CZ-ROCHE-1803175

PATIENT
  Sex: Male

DRUGS (2)
  1. PEG-INTERFERON ALFA 2A [Suspect]
     Active Substance: PEGINTERFERON ALFA-2A
     Indication: HEPATITIS C
     Route: 065
     Dates: start: 2004, end: 200505
  2. RIBAVIRIN. [Suspect]
     Active Substance: RIBAVIRIN
     Indication: HEPATITIS C
     Route: 065
     Dates: start: 2004, end: 200505

REACTIONS (6)
  - Renal failure [Unknown]
  - Leukopenia [Unknown]
  - Peritonitis bacterial [Unknown]
  - Anaemia [Unknown]
  - Interstitial lung disease [Unknown]
  - Cardiac failure [Unknown]

NARRATIVE: CASE EVENT DATE: 2004
